FAERS Safety Report 18632868 (Version 1)
Quarter: 2020Q4

REPORT INFORMATION
  Report Type: Spontaneous
  Country: US (occurrence: US)
  Receive Date: 20201218
  Receipt Date: 20201218
  Transmission Date: 20210114
  Serious: Yes (Hospitalization)
  Sender: FDA-Public Use
  Company Number: US-HIKMA PHARMACEUTICALS USA INC.-US-H14001-20-05638

PATIENT
  Age: 55 Year
  Sex: Female

DRUGS (7)
  1. PREDNISONE. [Suspect]
     Active Substance: PREDNISONE
     Indication: EOSINOPHILIC PNEUMONIA
     Dosage: UNKNOWN
     Route: 048
  2. SALMETEROL [Concomitant]
     Active Substance: SALMETEROL
     Indication: ASTHMA
     Dosage: UNKNOWN
     Route: 065
  3. FLUTICASONE. [Concomitant]
     Active Substance: FLUTICASONE
     Indication: ASTHMA
     Dosage: UNKNOWN
     Route: 065
  4. PREDNISONE. [Suspect]
     Active Substance: PREDNISONE
     Route: 048
  5. PREDNISONE. [Suspect]
     Active Substance: PREDNISONE
     Route: 048
  6. PREDNISONE. [Suspect]
     Active Substance: PREDNISONE
     Route: 048
  7. MEPOLIZUMAB [Concomitant]
     Active Substance: MEPOLIZUMAB
     Indication: EOSINOPHILIC PNEUMONIA
     Route: 058

REACTIONS (7)
  - Paranoia [Unknown]
  - Insomnia [Unknown]
  - Treatment noncompliance [Unknown]
  - Drug intolerance [Unknown]
  - Irritability [Unknown]
  - Anxiety [Unknown]
  - Drug ineffective [Unknown]
